FAERS Safety Report 10640295 (Version 2)
Quarter: 2014Q4

REPORT INFORMATION
  Report Type: Spontaneous
  Country: US (occurrence: US)
  Receive Date: 20141209
  Receipt Date: 20141223
  Transmission Date: 20150529
  Serious: No
  Sender: FDA-Public Use
  Company Number: US-TEVA-525289USA

PATIENT
  Age: 13 Year
  Sex: Female
  Weight: 49.94 kg

DRUGS (4)
  1. ZITHROMAX [Concomitant]
     Active Substance: AZITHROMYCIN DIHYDRATE
     Indication: BRONCHITIS
     Dosage: 250 MILLIGRAM DAILY;
  2. MUCINEX-DM [Concomitant]
     Indication: COUGH
  3. PROAIR HFA [Suspect]
     Active Substance: ALBUTEROL SULFATE
     Indication: BRONCHITIS
     Route: 055
     Dates: start: 20141120, end: 20141121
  4. PROMETHAZINE [Concomitant]
     Active Substance: PROMETHAZINE\PROMETHAZINE HYDROCHLORIDE
     Indication: COUGH

REACTIONS (6)
  - Drug ineffective [Unknown]
  - Cough [Recovering/Resolving]
  - Lacrimation increased [Not Recovered/Not Resolved]
  - Inappropriate schedule of drug administration [Unknown]
  - Sleep disorder [Recovered/Resolved]
  - Erythema [Not Recovered/Not Resolved]

NARRATIVE: CASE EVENT DATE: 201411
